FAERS Safety Report 12839133 (Version 1)
Quarter: 2016Q4

REPORT INFORMATION
  Report Type: Spontaneous
  Country: US (occurrence: US)
  Receive Date: 20161011
  Receipt Date: 20161011
  Transmission Date: 20170207
  Serious: Yes (Hospitalization)
  Sender: FDA-Public Use
  Company Number: None

PATIENT
  Age: 41 Year
  Sex: Female

DRUGS (1)
  1. HUMIRA [Suspect]
     Active Substance: ADALIMUMAB
     Indication: CROHN^S DISEASE
     Route: 058
     Dates: start: 20150708, end: 201609

REACTIONS (4)
  - Pericarditis [None]
  - Cardiac valve disease [None]
  - Gallbladder disorder [None]
  - Staphylococcal infection [None]

NARRATIVE: CASE EVENT DATE: 20160919
